FAERS Safety Report 7456730-0 (Version None)
Quarter: 2011Q2

REPORT INFORMATION
  Report Type: 
  Country: None (occurrence: None)
  Receive Date: 20110503
  Receipt Date: 20110503
  Transmission Date: 20111010
  Serious: Yes (Hospitalization, Other)
  Sender: FDA-Public Use
  Company Number: JP-RB-026818-11

PATIENT
  Age: 41 Year
  Sex: Female

DRUGS (7)
  1. LEPETAN INJECTION [Suspect]
     Indication: EPIDURAL ANAESTHESIA
     Route: 008
  2. PROPOFOL [Concomitant]
     Indication: ANAESTHESIA
     Dosage: DOSING INFORMATION IS UNKNOWN
     Route: 042
  3. PHENYLEPHRINE HYDROCHLORIDE [Concomitant]
     Indication: PRODUCT USED FOR UNKNOWN INDICATION
     Dosage: DOSING INFORMATION IS UNKNOWN
     Route: 065
  4. REMIFENTANIL HYDROCHLORIDE [Concomitant]
     Indication: ANAESTHESIA
     Dosage: DOSING INFORMATION IS UNKNOWN
     Route: 042
  5. ROPIVACAINE [Concomitant]
     Indication: EPIDURAL ANAESTHESIA
     Dosage: DOSING INFORMATION IS UNKNOWN
     Route: 008
  6. DROPERIDOL [Concomitant]
     Indication: EPIDURAL ANAESTHESIA
     Dosage: DOSING INFORMATION IS UNKNOWN
     Route: 008
  7. ETILEFRINE HYDROCHLORIDE [Concomitant]
     Indication: PRODUCT USED FOR UNKNOWN INDICATION
     Dosage: DOSING INFORMATION IS UNKNOWN
     Route: 065

REACTIONS (2)
  - SPUTUM INCREASED [None]
  - SPUTUM RETENTION [None]
